FAERS Safety Report 12046888 (Version 1)
Quarter: 2016Q1

REPORT INFORMATION
  Report Type: Spontaneous
  Country: US (occurrence: US)
  Receive Date: 20160209
  Receipt Date: 20160209
  Transmission Date: 20160526
  Serious: No
  Sender: FDA-Public Use
  Company Number: US-BIOGEN-2016BI00174621

PATIENT
  Sex: Female

DRUGS (10)
  1. NORTRIPTYLINE [Concomitant]
     Active Substance: NORTRIPTYLINE
  2. TECFIDERA [Suspect]
     Active Substance: DIMETHYL FUMARATE
     Indication: MULTIPLE SCLEROSIS
     Route: 048
     Dates: start: 20160102
  3. TECFIDERA [Suspect]
     Active Substance: DIMETHYL FUMARATE
     Route: 048
  4. AMITRIPTYLINE [Concomitant]
     Active Substance: AMITRIPTYLINE
  5. GABAPENTIN. [Concomitant]
     Active Substance: GABAPENTIN
  6. INDOMETHACIN. [Concomitant]
     Active Substance: INDOMETHACIN
  7. IBUPROFEN. [Concomitant]
     Active Substance: IBUPROFEN
  8. PRAMIPEXOLE. [Concomitant]
     Active Substance: PRAMIPEXOLE
  9. LYRICA [Concomitant]
     Active Substance: PREGABALIN
  10. TRAMADOL. [Concomitant]
     Active Substance: TRAMADOL

REACTIONS (4)
  - Flushing [Unknown]
  - Fall [Unknown]
  - Memory impairment [Unknown]
  - Drug dose omission [Unknown]
